FAERS Safety Report 8790978 (Version 1)
Quarter: 2012Q4

REPORT INFORMATION
  Report Type: Spontaneous
  Country: US (occurrence: None)
  Receive Date: 20120907
  Receipt Date: 20120907
  Transmission Date: 20130627
  Serious: Yes (Hospitalization, Other)
  Sender: FDA-Public Use
  Company Number: TPA2012A06106

PATIENT
  Age: 80 Year
  Sex: Male
  Weight: 63.5 kg

DRUGS (3)
  1. PREVPAC [Suspect]
     Indication: STOMACH PAIN
     Dosage: as required,
morning of 19aug2012
     Route: 048
     Dates: start: 20120816
  2. PREVPAC [Suspect]
     Indication: INFECTION
     Dosage: as required,
morning of 19aug2012
     Route: 048
     Dates: start: 20120816
  3. UNK MEDICATIONS (ALL OTHER THERAPEUTIC PRODUCTS) [Concomitant]

REACTIONS (7)
  - Posture abnormal [None]
  - Disorientation [None]
  - Hyporesponsive to stimuli [None]
  - Diarrhoea [None]
  - Fall [None]
  - Blood sodium decreased [None]
  - No therapeutic response [None]
